FAERS Safety Report 5255493-7 (Version None)
Quarter: 2007Q1

REPORT INFORMATION
  Report Type: 
  Country: None (occurrence: None)
  Receive Date: 20070305
  Receipt Date: 20070222
  Transmission Date: 20070707
  Serious: Yes (Death)
  Sender: FDA-Public Use
  Company Number: US-ROCHE-469988

PATIENT
  Age: 84 Year
  Sex: Female

DRUGS (11)
  1. BONIVA [Suspect]
     Indication: DRUG USE FOR UNKNOWN INDICATION
     Route: 065
     Dates: end: 20060419
  2. SYNTHROID [Concomitant]
     Indication: HYPOTHYROIDISM
  3. TOPROL-XL [Concomitant]
  4. LASIX [Concomitant]
     Dosage: INDICATION: HIGH BLOOD PRESSURE, SWELLING AND PERIPHERAL OEDEMA
  5. LANOXIN [Concomitant]
     Indication: ATRIAL FIBRILLATION
     Dosage: INDICATION: AF AND CONGESTIVE HEART FAILURE
  6. COUMADIN [Concomitant]
  7. ALTACE [Concomitant]
  8. XALATAN [Concomitant]
     Dosage: LEFT EYE
     Route: 047
  9. COSOPT [Concomitant]
     Dosage: LEFT EYE.
  10. MULTI-VITAMIN [Concomitant]
  11. CLONIDINE [Concomitant]
     Indication: BLOOD PRESSURE INCREASED
     Dosage: IF BLOOD PRESSURE BECOMES ELEVATED.

REACTIONS (1)
  - HAEMORRHAGIC STROKE [None]
